FAERS Safety Report 20557109 (Version 1)
Quarter: 2022Q1

REPORT INFORMATION
  Report Type: Other
  Country: SA (occurrence: None)
  Receive Date: 20220307
  Receipt Date: 20220307
  Transmission Date: 20220423
  Serious: Yes (Hospitalization)
  Sender: FDA-Public Use
  Company Number: SA-ROCHE-3041601

PATIENT
  Age: 47 Year
  Sex: Female

DRUGS (15)
  1. VALGANCICLOVIR [Suspect]
     Active Substance: VALGANCICLOVIR
     Indication: Pneumonia cytomegaloviral
     Route: 048
  2. MYCOPHENOLATE MOFETIL [Suspect]
     Active Substance: MYCOPHENOLATE MOFETIL
     Indication: Systemic lupus erythematosus
     Route: 065
  3. MYCOPHENOLATE MOFETIL [Suspect]
     Active Substance: MYCOPHENOLATE MOFETIL
     Indication: Systemic scleroderma
  4. HYDROXYCHLOROQUINE [Suspect]
     Active Substance: HYDROXYCHLOROQUINE
     Indication: Systemic lupus erythematosus
     Route: 065
  5. HYDROXYCHLOROQUINE [Suspect]
     Active Substance: HYDROXYCHLOROQUINE
     Indication: Systemic scleroderma
  6. PREDNISOLONE [Suspect]
     Active Substance: PREDNISOLONE
     Indication: Systemic lupus erythematosus
     Route: 065
  7. PREDNISOLONE [Suspect]
     Active Substance: PREDNISOLONE
     Indication: Systemic scleroderma
     Route: 065
  8. SILDENAFIL [Concomitant]
     Active Substance: SILDENAFIL
  9. SULFAMETHOXAZOLE\TRIMETHOPRIM [Concomitant]
     Active Substance: SULFAMETHOXAZOLE\TRIMETHOPRIM
     Indication: Antifungal prophylaxis
  10. VANCOMYCIN [Concomitant]
     Active Substance: VANCOMYCIN
  11. MEROPENEM [Concomitant]
     Active Substance: MEROPENEM
  12. DEXAMETHASONE [Concomitant]
     Active Substance: DEXAMETHASONE
     Dosage: FOR 13 DAYS
     Route: 042
  13. LOPINAVIR\RITONAVIR [Concomitant]
     Active Substance: LOPINAVIR\RITONAVIR
     Dosage: 400/100 MG DAILY
  14. RIBAVIRIN [Concomitant]
     Active Substance: RIBAVIRIN
     Dosage: TOTAL OF 14 DAYS
  15. GANCICLOVIR [Concomitant]
     Active Substance: GANCICLOVIR
     Route: 042

REACTIONS (2)
  - COVID-19 [Recovering/Resolving]
  - Off label use [Unknown]
